FAERS Safety Report 22210268 (Version 3)
Quarter: 2024Q3

REPORT INFORMATION
  Report Type: Report from Study
  Country: US (occurrence: US)
  Receive Date: 20230414
  Receipt Date: 20240828
  Transmission Date: 20241016
  Serious: No
  Sender: NOVARTIS
  Company Number: US-002147023-NVSC2023US085678

PATIENT
  Age: 69 Year
  Sex: Female
  Weight: 90.72 kg

DRUGS (1)
  1. ENTRESTO [Suspect]
     Active Substance: SACUBITRIL\VALSARTAN
     Indication: Myosin increased
     Dosage: 24.26 MG, BID
     Route: 048
     Dates: start: 202303

REACTIONS (7)
  - Blood glucose decreased [Unknown]
  - Fatigue [Unknown]
  - Product use in unapproved indication [Unknown]
  - Fatigue [Unknown]
  - Hypotension [Unknown]
  - Asthenia [Unknown]
  - Inappropriate schedule of product administration [Unknown]

NARRATIVE: CASE EVENT DATE: 20230301
